FAERS Safety Report 6821968-X (Version None)
Quarter: 2010Q3

REPORT INFORMATION
  Report Type: 
  Country: None (occurrence: None)
  Receive Date: 20100708
  Receipt Date: 20100628
  Transmission Date: 20110219
  Serious: No
  Sender: FDA-Public Use
  Company Number: 2009BI013268

PATIENT
  Age: 40 Year
  Sex: Female

DRUGS (4)
  1. TYSABRI [Suspect]
     Indication: MULTIPLE SCLEROSIS
     Route: 042
     Dates: start: 20070214, end: 20080725
  2. TYSABRI [Suspect]
     Route: 042
     Dates: start: 20080905
  3. AVONEX [Concomitant]
     Indication: MULTIPLE SCLEROSIS
     Route: 030
     Dates: start: 20020910, end: 20061219
  4. AVONEX [Concomitant]
     Route: 030

REACTIONS (1)
  - CENTRAL VENOUS CATHETERISATION [None]
